FAERS Safety Report 26122464 (Version 2)
Quarter: 2025Q4

REPORT INFORMATION
  Report Type: Spontaneous
  Country: GB (occurrence: GB)
  Receive Date: 20251204
  Receipt Date: 20251211
  Transmission Date: 20260118
  Serious: Yes (Hospitalization, Other)
  Sender: B. BRAUN MEDICAL INC.
  Company Number: None

PATIENT
  Age: 61 Year
  Sex: Female

DRUGS (2)
  1. DEXTROSE [Suspect]
     Active Substance: DEXTROSE MONOHYDRATE
     Dosage: PERIPHERAL CANNULA INSERTED ONTO THE DORSUM OF THE LEFT FOOT; 10% GLUCOSE
  2. METARAMINOL [Suspect]
     Active Substance: METARAMINOL
     Dosage: PERIPHERAL CANNULA INSERTED ONTO THE DORSUM OF THE LEFT FOOT

REACTIONS (3)
  - Calciphylaxis [Recovering/Resolving]
  - Vascular injury [Recovering/Resolving]
  - Injection site extravasation [Recovering/Resolving]
